FAERS Safety Report 9148419 (Version 2)
Quarter: 2013Q2

REPORT INFORMATION
  Report Type: Report from Study
  Country: KR (occurrence: KR)
  Receive Date: 20130308
  Receipt Date: 20130506
  Transmission Date: 20140414
  Serious: Yes (Hospitalization, Other)
  Sender: FDA-Public Use
  Company Number: PHHY2013KR022266

PATIENT
  Age: 63 Year
  Sex: Female
  Weight: 44 kg

DRUGS (6)
  1. AFINITOR [Suspect]
     Indication: METASTATIC RENAL CELL CARCINOMA
     Dosage: 10 MG, QD
     Route: 048
     Dates: start: 20120716, end: 20121224
  2. ADALAT [Concomitant]
     Indication: HYPERTENSION
     Dosage: 12.5 MG
     Dates: start: 20050427
  3. BISPROLOL COMP [Concomitant]
     Indication: HYPERTENSION
     Dosage: 12.5 MG
     Dates: start: 20050427
  4. TORSEMIDE [Concomitant]
     Indication: HYPERTENSION
     Dosage: 10 MG
     Dates: start: 20120618
  5. TOPAMAX [Concomitant]
     Indication: OSTEOPOROSIS
  6. CALCIUM CHANNEL BLOCKERS [Concomitant]

REACTIONS (7)
  - Faecal incontinence [Unknown]
  - Lethargy [Unknown]
  - Urinary incontinence [Unknown]
  - Confusional state [Recovered/Resolved]
  - Renal impairment [Unknown]
  - Arthralgia [Unknown]
  - Metastases to bone [Not Recovered/Not Resolved]
